FAERS Safety Report 13661683 (Version 9)
Quarter: 2018Q1

REPORT INFORMATION
  Report Type: Report from Study
  Country: CA (occurrence: CA)
  Receive Date: 20170616
  Receipt Date: 20180324
  Transmission Date: 20180508
  Serious: Yes (Death, Other)
  Sender: FDA-Public Use
  Company Number: CA-TAKEDA-2017TUS012699

PATIENT
  Age: 64 Year
  Sex: Male

DRUGS (11)
  1. VEDOLIZUMAB [Suspect]
     Active Substance: VEDOLIZUMAB
     Dosage: 300 MG, Q4WEEKS
     Route: 042
     Dates: start: 20161006
  2. METOPROLOL. [Concomitant]
     Active Substance: METOPROLOL
     Dosage: 50 MG, BID
  3. RAMIPRIL. [Concomitant]
     Active Substance: RAMIPRIL
     Dosage: 5 MG, BID
  4. ASACOL [Concomitant]
     Active Substance: MESALAMINE
     Dosage: `UNK, QD
  5. SULFASALAZINE. [Concomitant]
     Active Substance: SULFASALAZINE
     Dosage: UNK, QD
  6. VEDOLIZUMAB [Suspect]
     Active Substance: VEDOLIZUMAB
     Indication: COLITIS ULCERATIVE
     Dosage: 300 MG, UNK
     Route: 042
     Dates: start: 20160412
  7. VEDOLIZUMAB [Suspect]
     Active Substance: VEDOLIZUMAB
     Dosage: 300 MG, Q4WEEKS
     Route: 042
     Dates: start: 20171013
  8. ULORIC [Concomitant]
     Active Substance: FEBUXOSTAT
     Dosage: 80 MG, QD
  9. VEDOLIZUMAB [Suspect]
     Active Substance: VEDOLIZUMAB
     Dosage: 300 MG, UNK
     Route: 042
     Dates: start: 20170828
  10. PANTOPRAZOLE [Concomitant]
     Active Substance: PANTOPRAZOLE
     Dosage: 40 MG, QD
  11. PREDNISONE. [Concomitant]
     Active Substance: PREDNISONE
     Dosage: 20 MG, BID

REACTIONS (8)
  - Cardiac failure congestive [Unknown]
  - Squamous cell carcinoma [Fatal]
  - Condition aggravated [Unknown]
  - Ill-defined disorder [Unknown]
  - Thrombosis [Unknown]
  - Dyspnoea [Not Recovered/Not Resolved]
  - Chest pain [Not Recovered/Not Resolved]
  - Off label use [Unknown]
